FAERS Safety Report 5562997-6 (Version None)
Quarter: 2007Q4

REPORT INFORMATION
  Report Type: 
  Country: None (occurrence: None)
  Receive Date: 20071217
  Receipt Date: 20071207
  Transmission Date: 20080405
  Serious: Yes (Death)
  Sender: FDA-Public Use
  Company Number: GB-ROCHE-529145

PATIENT
  Age: 29 Year
  Sex: Female

DRUGS (4)
  1. XELODA [Suspect]
     Route: 065
     Dates: start: 20071003
  2. HYOSCINE NOS [Concomitant]
     Route: 058
     Dates: start: 20071120
  3. DIAMORPHINE [Concomitant]
     Indication: ANXIETY
     Route: 058
     Dates: start: 20071120
  4. LEVOPROMAZINE [Concomitant]
     Indication: NAUSEA
     Route: 058
     Dates: start: 20071120

REACTIONS (5)
  - ANXIETY [None]
  - MIGRAINE [None]
  - NAUSEA [None]
  - PAIN [None]
  - SEPSIS [None]
